FAERS Safety Report 19889029 (Version 1)
Quarter: 2021Q3

REPORT INFORMATION
  Report Type: Other
  Country: DE (occurrence: DE)
  Receive Date: 20210927
  Receipt Date: 20210927
  Transmission Date: 20211014
  Serious: Yes (Other)
  Sender: FDA-Public Use
  Company Number: DE-LUPIN PHARMACEUTICALS INC.-2021-18527

PATIENT
  Age: 31 Year
  Sex: Female
  Weight: 60 kg

DRUGS (5)
  1. INFLUSPLIT TETRA [Suspect]
     Active Substance: INFLUENZA VIRUS VACCINE
     Indication: IMMUNISATION
     Dosage: UNK, 29.6. ? 29.6. GESTATIONAL WEEK (3 {TRIMESTER})
     Route: 030
     Dates: start: 20201001, end: 20201001
  2. DULOXETINE. [Suspect]
     Active Substance: DULOXETINE
     Indication: DEPRESSION
     Dosage: 60 (MG/D) (0. ? 36.1. GESTATIONAL WEEK) (1 {TRIMESTER})
     Route: 048
     Dates: start: 20200306, end: 20201114
  3. BOOSTRIX POLIO [Suspect]
     Active Substance: DIPHTHERIA AND TETANUS TOXOIDS AND ACELLULAR PERTUSSIS ADSORBED AND INACTIVATED POLIOVIRUS VACCINE
     Indication: IMMUNISATION
     Dosage: UNK, (31.4. ? 31.4. GESTATIONAL WEEK)(3 {TRIMESTER})
     Route: 030
     Dates: start: 20201013, end: 20201013
  4. L?THYROXIN [Suspect]
     Active Substance: LEVOTHYROXINE SODIUM
     Indication: HYPOTHYROIDISM
     Dosage: 50 (???G/D) (7. ? 40.6. GESTATIONAL WEEK) (1 {TRIMESTER})
     Route: 048
     Dates: start: 20200424, end: 20201217
  5. FOLIO FORTE [Suspect]
     Active Substance: FOLIC ACID\VITAMINS
     Indication: PROPHYLAXIS OF NEURAL TUBE DEFECT
     Dosage: UNK, 0. ? 41.1. GESTATIONAL WEEK
     Route: 048
     Dates: start: 20200306, end: 20201219

REACTIONS (1)
  - Exposure during pregnancy [Unknown]
